FAERS Safety Report 25195407 (Version 1)
Quarter: 2025Q2

REPORT INFORMATION
  Report Type: Spontaneous
  Country: US (occurrence: US)
  Receive Date: 20250415
  Receipt Date: 20250415
  Transmission Date: 20250716
  Serious: No
  Sender: TEVA
  Company Number: US-TEVA-VS-3319104

PATIENT
  Sex: Female

DRUGS (2)
  1. ROPINIROLE [Suspect]
     Active Substance: ROPINIROLE
     Indication: Product used for unknown indication
     Dosage: AT BEDTIME
     Route: 065
  2. Carbadopa-Levodopa [Concomitant]
     Indication: Product used for unknown indication

REACTIONS (4)
  - Somnolence [Unknown]
  - Asthenia [Unknown]
  - Therapy partial responder [Unknown]
  - Product use in unapproved indication [Unknown]
